FAERS Safety Report 8247858-6 (Version None)
Quarter: 2012Q1

REPORT INFORMATION
  Report Type: 
  Country: None (occurrence: None)
  Receive Date: 20120330
  Receipt Date: 20120326
  Transmission Date: 20120608
  Serious: Yes (Other)
  Sender: FDA-Public Use
  Company Number: US-PFIZER INC-2012014148

PATIENT
  Sex: Female

DRUGS (5)
  1. NEXIUM [Concomitant]
     Indication: GASTROOESOPHAGEAL REFLUX DISEASE
     Dosage: 40 MG, UNK
     Dates: start: 20120206
  2. AMARYL [Concomitant]
     Indication: TYPE 2 DIABETES MELLITUS
     Dosage: 8 MG, UNK
  3. LIPITOR [Suspect]
     Indication: LIPIDS INCREASED
     Dosage: 10 MG, AT HOUR OF SLEEP
     Route: 048
     Dates: start: 20111123, end: 20111202
  4. METFORMIN [Concomitant]
     Indication: TYPE 2 DIABETES MELLITUS
     Dosage: 1000/DAY
     Dates: end: 20111202
  5. HYZAAR [Concomitant]
     Dosage: 100/25
     Dates: end: 20111202

REACTIONS (3)
  - HEPATITIS CHOLESTATIC [None]
  - RENAL TUBULAR NECROSIS [None]
  - DRUG HYPERSENSITIVITY [None]
